FAERS Safety Report 8332142-2 (Version None)
Quarter: 2012Q2

REPORT INFORMATION
  Report Type: 
  Country: None (occurrence: None)
  Receive Date: 20120502
  Receipt Date: 20120423
  Transmission Date: 20120825
  Serious: Yes (Other)
  Sender: FDA-Public Use
  Company Number: NL-AMGEN-NLDSP2011009581

PATIENT
  Age: 52 Year
  Sex: Female
  Weight: 77 kg

DRUGS (2)
  1. ENBREL [Suspect]
     Indication: ANKYLOSING SPONDYLITIS
     Dosage: 50 MG, UNK
     Route: 065
     Dates: start: 20090518, end: 20110202
  2. CELEBREX [Concomitant]
     Dosage: 100 MG, AS NEEDED
     Dates: start: 20080601

REACTIONS (4)
  - INFLAMMATION [None]
  - LEUKAEMIA [None]
  - INFECTION [None]
  - PNEUMONIA [None]
